FAERS Safety Report 24243670 (Version 1)
Quarter: 2024Q3

REPORT INFORMATION
  Report Type: Report from Study
  Country: US (occurrence: US)
  Receive Date: 20240823
  Receipt Date: 20240823
  Transmission Date: 20241017
  Serious: Yes (Hospitalization)
  Sender: EISAI
  Company Number: US-Eisai-EC-2024-172600

PATIENT
  Age: 80 Year
  Sex: Female
  Weight: 62.5 kg

DRUGS (2)
  1. LENVIMA [Suspect]
     Active Substance: LENVATINIB
     Indication: Thyroid cancer
     Dosage: DRUG  BREAK  17APR2024- 23APR2024
     Route: 048
     Dates: start: 20230103, end: 20240416
  2. LENVIMA [Suspect]
     Active Substance: LENVATINIB
     Dosage: TAKES THE MEDICATION ONCE DAILY FOR 2 WEEKS ON THEN ONE WEEK OF
     Route: 048
     Dates: start: 2024, end: 2024

REACTIONS (2)
  - Dehydration [Unknown]
  - Rash [Unknown]

NARRATIVE: CASE EVENT DATE: 20240701
